FAERS Safety Report 18956924 (Version 1)
Quarter: 2021Q1

REPORT INFORMATION
  Report Type: Spontaneous
  Country: US (occurrence: US)
  Receive Date: 20210302
  Receipt Date: 20210302
  Transmission Date: 20210420
  Serious: Yes (Other)
  Sender: FDA-Public Use
  Company Number: US-BEH-2021128930

PATIENT
  Sex: Male

DRUGS (1)
  1. PRIVIGEN [Suspect]
     Active Substance: HUMAN IMMUNOGLOBULIN G
     Indication: MULTIFOCAL MOTOR NEUROPATHY
     Dosage: 50 GRAM, DAILY FOR 3 DAYS
     Route: 042
     Dates: start: 20210112, end: 20210114

REACTIONS (13)
  - Neutrophil count increased [Unknown]
  - Pyrexia [Unknown]
  - Asthenia [Unknown]
  - Arthralgia [Unknown]
  - Oedema peripheral [Unknown]
  - Headache [Unknown]
  - Chills [Unknown]
  - Myalgia [Unknown]
  - Inflammatory marker increased [Unknown]
  - Pain in extremity [Unknown]
  - Rash erythematous [Unknown]
  - Hyperaesthesia [Unknown]
  - Erythema [Unknown]

NARRATIVE: CASE EVENT DATE: 202101
